FAERS Safety Report 6922544-0 (Version None)
Quarter: 2010Q3

REPORT INFORMATION
  Report Type: 
  Country: None (occurrence: None)
  Receive Date: 20100813
  Receipt Date: 20100730
  Transmission Date: 20110219
  Serious: Yes (Other)
  Sender: FDA-Public Use
  Company Number: GB-RANBAXY-2010RR-36151

PATIENT
  Age: 14 Year
  Sex: Female

DRUGS (11)
  1. CETIRIZINE HCL [Suspect]
     Indication: SEASONAL ALLERGY
     Dosage: 10 MG, QD
     Dates: start: 20090917, end: 20091013
  2. CERVARIX [Suspect]
     Indication: PROPHYLAXIS
     Dosage: 1 DF, QD
     Route: 030
     Dates: start: 20091008, end: 20091008
  3. DEPO-PROVERA [Suspect]
     Indication: CONTRACEPTION
     Dosage: UNK
     Route: 030
     Dates: start: 20090911
  4. DEPO-PROVERA [Suspect]
     Dosage: UNK
     Route: 030
  5. FLUCLOXACILLIN [Suspect]
     Indication: ACARODERMATITIS
     Dosage: 250 MG, QID
     Route: 065
     Dates: start: 20090710
  6. FUCIDIN H [Suspect]
     Indication: ACARODERMATITIS
     Dosage: UNK
     Route: 065
     Dates: start: 20090710
  7. MALATHION [Suspect]
     Indication: ACARODERMATITIS
     Dosage: UNK
     Route: 061
     Dates: start: 20090806, end: 20090813
  8. MALATHION [Suspect]
     Dosage: UNK
     Dates: start: 20090623
  9. PERMETHRIN [Suspect]
     Indication: ACARODERMATITIS
     Dosage: UNK
     Route: 061
     Dates: start: 20090917, end: 20090924
  10. TRIMETHOPRIM [Suspect]
     Indication: URINARY TRACT INFECTION
     Dosage: 200 MG, BID
     Route: 065
     Dates: start: 20090604
  11. PAROXETINE [Concomitant]

REACTIONS (3)
  - DRUG EXPOSURE DURING PREGNANCY [None]
  - LIVE BIRTH [None]
  - PREGNANCY WITH INJECTABLE CONTRACEPTIVE [None]
